FAERS Safety Report 7590509-4 (Version None)
Quarter: 2011Q3

REPORT INFORMATION
  Report Type: 
  Country: None (occurrence: None)
  Receive Date: 20110705
  Receipt Date: 20100503
  Transmission Date: 20111222
  Serious: No
  Sender: FDA-Public Use
  Company Number: US-BAYER-201022003NA

PATIENT
  Sex: Female

DRUGS (1)
  1. DROSPIRENONE AND ETHINYL ESTRADIOL [Suspect]
     Indication: ACNE

REACTIONS (5)
  - VOMITING [None]
  - ANXIETY [None]
  - DEPRESSION [None]
  - VAGINAL HAEMORRHAGE [None]
  - BREAST TENDERNESS [None]
